FAERS Safety Report 20796710 (Version 1)
Quarter: 2022Q2

REPORT INFORMATION
  Report Type: Report from Study
  Country: BR (occurrence: BR)
  Receive Date: 20220506
  Receipt Date: 20220506
  Transmission Date: 20220720
  Serious: Yes (Hospitalization)
  Sender: FDA-Public Use
  Company Number: BR-JNJFOC-20220502425

PATIENT
  Age: 49 Year
  Sex: Female
  Weight: 57 kg

DRUGS (1)
  1. REMICADE [Suspect]
     Active Substance: INFLIXIMAB
     Indication: Colitis ulcerative
     Route: 042
     Dates: start: 20211208

REACTIONS (4)
  - Hydrocephalus [Unknown]
  - Coma [Unknown]
  - Meningitis listeria [Unknown]
  - Gastroenteritis listeria [Unknown]

NARRATIVE: CASE EVENT DATE: 20220112
